FAERS Safety Report 5022504-3 (Version None)
Quarter: 2006Q2

REPORT INFORMATION
  Report Type: 
  Country: None (occurrence: None)
  Receive Date: 20060502
  Receipt Date: 20050819
  Transmission Date: 20061013
  Serious: Yes (Other)
  Sender: FDA-Public Use
  Company Number: PHEH2005US09275

PATIENT
  Age: 57 Year
  Sex: Female

DRUGS (5)
  1. LOTREL [Suspect]
     Indication: HYPERTENSION
     Dosage: 5MG AML/10MG BEN, QD, ORAL
     Route: 048
     Dates: start: 20050201
  2. ADVAIR DISKUS 100/50 [Concomitant]
  3. ALBUTEROL [Concomitant]
  4. COUGH SYRUP (ANTIMONY POTASSIUM TARTRATE, OPIUM TINCTURE, PAPAVER SOMN [Concomitant]
  5. ALLERGY MEDICATION (NO INGREDIENTS/SUBSTANCES) [Concomitant]

REACTIONS (8)
  - ABDOMINAL DISTENSION [None]
  - COUGH [None]
  - DYSPNOEA [None]
  - HEADACHE [None]
  - OEDEMA PERIPHERAL [None]
  - UPPER RESPIRATORY TRACT INFECTION [None]
  - WEIGHT INCREASED [None]
  - WHEEZING [None]
